FAERS Safety Report 6686302-7 (Version None)
Quarter: 2010Q2

REPORT INFORMATION
  Report Type: 
  Country: None (occurrence: None)
  Receive Date: 20100419
  Receipt Date: 20100414
  Transmission Date: 20101027
  Serious: Yes (Death)
  Sender: FDA-Public Use
  Company Number: FR-PFIZER INC-2010047045

PATIENT
  Age: 63 Year
  Sex: Male
  Weight: 93 kg

DRUGS (13)
  1. *PREDNISONE [Suspect]
     Indication: PROSTATE CANCER
     Dosage: 5 MG, 2X/DAY
     Dates: start: 20091126
  2. BLINDED *NO SUBJECT DRUG [Suspect]
     Indication: PROSTATE CANCER
     Dosage: 25 MG, 1X/DAY
     Route: 048
     Dates: start: 20091126
  3. BLINDED *PLACEBO [Suspect]
     Indication: PROSTATE CANCER
     Dosage: 25 MG, 1X/DAY
     Route: 048
     Dates: start: 20091126
  4. BLINDED SUNITINIB MALATE [Suspect]
     Indication: PROSTATE CANCER
     Dosage: 25 MG, 1X/DAY
     Route: 048
     Dates: start: 20091126
  5. PROCTOLOG [Concomitant]
     Indication: HAEMORRHOIDS
     Dosage: 1 TO 2 DAILY DF
     Route: 054
     Dates: start: 20100226
  6. LACTULOSE [Concomitant]
     Indication: CONSTIPATION
     Dosage: UNK
     Route: 048
     Dates: start: 20081231
  7. TRANSIPEG [Concomitant]
     Indication: CONSTIPATION
     Dosage: UNK
     Route: 048
     Dates: start: 20100201
  8. ZANIDIP [Concomitant]
     Indication: HYPERTENSION
     Dosage: 10 MG, UNK
     Route: 048
     Dates: start: 20100302
  9. MOXYDAR [Concomitant]
     Indication: DUODENOGASTRIC REFLUX
     Dosage: UNK
     Route: 048
     Dates: start: 20081218
  10. NEXIUM [Concomitant]
     Indication: DUODENOGASTRIC REFLUX
     Dosage: 40 MG, 2X/DAY
     Route: 048
     Dates: start: 20081218
  11. ZOMETA [Concomitant]
     Indication: METASTASES TO BONE
     Dosage: 4 MG, MONTHLY
     Route: 042
     Dates: start: 20090601
  12. OXYCONTIN [Concomitant]
     Indication: PAIN
     Dosage: 10 MG, 2X/DAY
     Route: 048
     Dates: start: 20091210
  13. OXYCODONE HCL [Concomitant]
     Indication: PAIN
     Dosage: 5 MG, AS NEEDED
     Route: 048
     Dates: start: 20091210

REACTIONS (1)
  - DEATH [None]
